FAERS Safety Report 15110471 (Version 2)
Quarter: 2018Q3

REPORT INFORMATION
  Report Type: Report from Study
  Country: PA (occurrence: PA)
  Receive Date: 20180705
  Receipt Date: 20180719
  Transmission Date: 20181010
  Serious: Yes (Other)
  Sender: FDA-Public Use
  Company Number: PHHY2018PA034404

PATIENT
  Age: 69 Year
  Sex: Male

DRUGS (4)
  1. SANDOSTATIN LAR DEPOT [Suspect]
     Active Substance: OCTREOTIDE ACETATE
     Indication: LUNG NEOPLASM MALIGNANT
     Dosage: UNK
     Route: 065
  2. SANDOSTATIN LAR DEPOT [Suspect]
     Active Substance: OCTREOTIDE ACETATE
     Indication: METASTASES TO SPINE
  3. AFINITOR [Suspect]
     Active Substance: EVEROLIMUS
     Indication: LUNG NEOPLASM MALIGNANT
     Dosage: 1 DF, QD
     Route: 048
     Dates: end: 20180626
  4. AFINITOR [Suspect]
     Active Substance: EVEROLIMUS
     Indication: METASTASES TO SPINE

REACTIONS (10)
  - Back pain [Unknown]
  - Laboratory test abnormal [Recovering/Resolving]
  - Umbilical hernia [Unknown]
  - Discomfort [Unknown]
  - Glaucoma [Unknown]
  - Dysgeusia [Unknown]
  - Product use in unapproved indication [Unknown]
  - Chest pain [Unknown]
  - Eating disorder [Unknown]
  - Malaise [Unknown]
